FAERS Safety Report 7620488 (Version 2)
Quarter: 2014Q2

REPORT INFORMATION
  Report Type: Spontaneous
  Country: US (occurrence: US)
  Receive Date: 20101007
  Receipt Date: 20140509
  Transmission Date: 20141212
  Serious: Yes (Hospitalization, Other)
  Sender: FDA-Public Use
  Company Number: US-BAYER-201035753NA

PATIENT
  Age: 30 Year
  Sex: Female

DRUGS (6)
  1. YAZ [Suspect]
     Route: 048
     Dates: start: 200602, end: 200712
  2. YASMIN [Suspect]
     Route: 048
     Dates: start: 200602, end: 200712
  3. ZANTAC [Concomitant]
  4. SOMA [Concomitant]
  5. PERCOCET [Concomitant]
  6. VICODIN [Concomitant]
     Dosage: UNK UNK, PRN

REACTIONS (2)
  - Gallbladder disorder [None]
  - Cholecystitis chronic [None]
